FAERS Safety Report 6390605-3 (Version None)
Quarter: 2009Q4

REPORT INFORMATION
  Report Type: 
  Country: None (occurrence: None)
  Receive Date: 20091006
  Receipt Date: 20090928
  Transmission Date: 20100525
  Serious: Yes (Other)
  Sender: FDA-Public Use
  Company Number: CN-JNJFOC-20090806879

PATIENT
  Age: 26 Year
  Sex: Male

DRUGS (4)
  1. DAKTARIN POWDER [Suspect]
     Route: 061
  2. DAKTARIN POWDER [Suspect]
     Indication: TINEA PEDIS
     Dosage: USED SUFFICIENT QUANTITY IN A DAY
     Route: 061
  3. DAKTARIN CREAM [Suspect]
     Route: 061
  4. DAKTARIN CREAM [Suspect]
     Indication: TINEA PEDIS
     Dosage: USED SUFFICIENT QUANTITY IN A DAY
     Route: 061

REACTIONS (3)
  - URTICARIA [None]
  - VASCULITIS [None]
  - WRONG TECHNIQUE IN DRUG USAGE PROCESS [None]
